FAERS Safety Report 5507652-3 (Version None)
Quarter: 2007Q4

REPORT INFORMATION
  Report Type: 
  Country: None (occurrence: None)
  Receive Date: 20071106
  Receipt Date: 20071024
  Transmission Date: 20080405
  Serious: Yes (Hospitalization, Other)
  Sender: FDA-Public Use
  Company Number: AU-NOVOPROD-268997

PATIENT
  Age: 19 Year
  Sex: Female
  Weight: 37 kg

DRUGS (6)
  1. LEVEMIR [Suspect]
     Indication: TYPE 1 DIABETES MELLITUS
     Dosage: 26 IU, QD
     Route: 058
  2. LEVEMIR [Suspect]
     Dosage: 32 IU, QD
     Route: 058
  3. LEVEMIR [Suspect]
     Dosage: 30 IU, QD
     Route: 058
  4. HUMALOG [Concomitant]
     Indication: TYPE 1 DIABETES MELLITUS
     Dosage: 20 -30 IU, PREMEALS
     Route: 058
  5. HUMALOG [Concomitant]
     Dosage: 78 IU, (24IU+26IU+28IU)
  6. HUMALOG [Concomitant]
     Dosage: 69 IU, (22IU+20IU+27IU)
     Route: 058

REACTIONS (4)
  - ASCITES [None]
  - FACE OEDEMA [None]
  - OEDEMA PERIPHERAL [None]
  - PLEURAL EFFUSION [None]
